FAERS Safety Report 8737510 (Version 3)
Quarter: 2013Q4

REPORT INFORMATION
  Report Type: Report from Study
  Country: JP (occurrence: JP)
  Receive Date: 20120822
  Receipt Date: 20131106
  Transmission Date: 20140711
  Serious: Yes (Hospitalization)
  Sender: FDA-Public Use
  Company Number: JP-009507513-1208JPN000331

PATIENT
  Age: 67 Year
  Sex: Male
  Weight: 60 kg

DRUGS (9)
  1. PEGINTRON [Suspect]
     Indication: HEPATITIS C
     Dosage: 1.5MCG/KG/WEEK
     Route: 058
     Dates: start: 20120405, end: 20120605
  2. REBETOL [Suspect]
     Indication: HEPATITIS C
     Route: 048
     Dates: start: 20120405, end: 20120605
  3. TELAVIC [Suspect]
     Indication: HEPATITIS C
     Route: 048
     Dates: start: 20120405, end: 20120529
  4. OMEPRAL [Concomitant]
     Route: 048
     Dates: start: 20120417, end: 20120605
  5. GASMOTIN [Concomitant]
     Dosage: 15 MG, ONCE
     Route: 048
     Dates: start: 20120417, end: 20120605
  6. BISULASE [Concomitant]
     Route: 048
     Dates: start: 20120417, end: 20120605
  7. PROMAC (POLAPREZINC) [Concomitant]
     Route: 048
     Dates: start: 20120417, end: 20120605
  8. ZYLORIC [Concomitant]
     Dosage: 200 MG, ONCE
     Route: 048
     Dates: start: 20120508, end: 20120605
  9. CELESTAMINE (BETAMETHASONE (+) DEXCHLORPHENIRAMINE MALEATE) [Concomitant]
     Route: 048
     Dates: start: 20120522

REACTIONS (1)
  - Drug eruption [Recovering/Resolving]
